FAERS Safety Report 5240374-5 (Version None)
Quarter: 2007Q1

REPORT INFORMATION
  Report Type: 
  Country: None (occurrence: None)
  Receive Date: 20061208
  Receipt Date: 20050304
  Transmission Date: 20070707
  Serious: Yes (Other)
  Sender: FDA-Public Use
  Company Number: 2005UW03578

PATIENT
  Age: 43 Year
  Sex: Male
  Weight: 113.39 kg

DRUGS (3)
  1. CRESTOR [Suspect]
     Indication: BLOOD CHOLESTEROL INCREASED
     Dosage: 5 MG PO
     Route: 048
     Dates: start: 20050203
  2. MSIR [Concomitant]
  3. LORAZEPAM [Concomitant]

REACTIONS (5)
  - CONSTIPATION [None]
  - DIZZINESS [None]
  - PAIN IN EXTREMITY [None]
  - SKIN DISCOLOURATION [None]
  - TINNITUS [None]
